FAERS Safety Report 7942179-0 (Version None)
Quarter: 2011Q4

REPORT INFORMATION
  Report Type: 
  Country: None (occurrence: None)
  Receive Date: 20111123
  Receipt Date: 20111123
  Transmission Date: 20120403
  Serious: Yes (Other)
  Sender: FDA-Public Use
  Company Number: None

PATIENT
  Sex: Male
  Weight: 100.2449 kg

DRUGS (1)
  1. PRADAXA [Suspect]
     Indication: ATRIAL FIBRILLATION
     Dosage: 150 MGS 1 CAPSULE TWICE DAILY
     Dates: start: 20110601, end: 20111101

REACTIONS (2)
  - PAIN [None]
  - ARTHRALGIA [None]
